FAERS Safety Report 9765908 (Version 1)
Quarter: 2013Q4

REPORT INFORMATION
  Report Type: Spontaneous
  Country: US (occurrence: US)
  Receive Date: 20131217
  Receipt Date: 20131217
  Transmission Date: 20140711
  Serious: No
  Sender: FDA-Public Use
  Company Number: US-GLAXOSMITHKLINE-A1013552A

PATIENT
  Age: 41 Year
  Sex: Male

DRUGS (3)
  1. VOTRIENT [Suspect]
     Indication: RENAL DISORDER
     Dosage: 800MG PER DAY
     Route: 048
     Dates: start: 20120814, end: 20130123
  2. LEVOTHYROXINE [Concomitant]
  3. LISINOPRIL + HYDROCHLOROTHIAZIDE [Concomitant]

REACTIONS (1)
  - Hepatic enzyme increased [Unknown]
